FAERS Safety Report 5522558-1 (Version None)
Quarter: 2007Q4

REPORT INFORMATION
  Report Type: 
  Country: None (occurrence: None)
  Receive Date: 20071120
  Receipt Date: 20071110
  Transmission Date: 20080405
  Serious: Yes (Other)
  Sender: FDA-Public Use
  Company Number: FI-PFIZER INC-2007089329

PATIENT
  Sex: Female

DRUGS (6)
  1. XALATAN [Suspect]
     Indication: GLAUCOMA
     Route: 031
     Dates: start: 20070101, end: 20071101
  2. ARCOXIA [Interacting]
     Indication: MUSCULOSKELETAL DISCOMFORT
     Route: 048
     Dates: start: 20070101, end: 20071005
  3. TRUSOPT [Concomitant]
     Dosage: DAILY DOSE:2DROP
     Route: 031
  4. HUMATE-P [Concomitant]
  5. BLOOD COAGULATION FACTORS [Concomitant]
  6. COZAAR [Concomitant]
     Indication: HYPERTENSION
     Route: 048

REACTIONS (4)
  - AGEUSIA [None]
  - DRUG INTERACTION [None]
  - SENSORY DISTURBANCE [None]
  - VISUAL DISTURBANCE [None]
